FAERS Safety Report 25606493 (Version 1)
Quarter: 2025Q3

REPORT INFORMATION
  Report Type: Spontaneous
  Country: US (occurrence: US)
  Receive Date: 20250725
  Receipt Date: 20250725
  Transmission Date: 20251020
  Serious: Yes (Other)
  Sender: PFIZER
  Company Number: US-PFIZER INC-PV202500088574

PATIENT
  Age: 71 Year
  Sex: Female

DRUGS (20)
  1. XELJANZ [Suspect]
     Active Substance: TOFACITINIB CITRATE
     Dates: end: 202302
  2. NORVASC [Concomitant]
     Active Substance: AMLODIPINE BESYLATE
  3. ECOTRIN [Concomitant]
     Active Substance: ASPIRIN
  4. BREZTRI AEROSPHERE [BUDESONIDE;FORMOTEROL FUMARATE DIHYDRATE;GLYCOPYRR [Concomitant]
  5. ROCALTROL [Concomitant]
     Active Substance: CALCITRIOL
  6. ACTHAR [Concomitant]
     Active Substance: CORTICOTROPIN
  7. FENTANYL PF [Concomitant]
  8. BUPIVACAINE [Concomitant]
     Active Substance: BUPIVACAINE
  9. SODIUM CHLORIDE [Concomitant]
     Active Substance: SODIUM CHLORIDE
  10. NEURONTIN [Concomitant]
     Active Substance: GABAPENTIN
  11. ALBUTEROL\IPRATROPIUM [Concomitant]
     Active Substance: ALBUTEROL\IPRATROPIUM
  12. AVAPRO [Concomitant]
     Active Substance: IRBESARTAN
  13. SYNTHROID [Concomitant]
     Active Substance: LEVOTHYROXINE SODIUM
  14. CLARITIN [Concomitant]
     Active Substance: LORATADINE
  15. MAGNESIUM OXIDE [Concomitant]
     Active Substance: MAGNESIUM OXIDE
  16. NYSTOP [Concomitant]
     Active Substance: NYSTATIN
  17. OMEPRAZOLE [Concomitant]
     Active Substance: OMEPRAZOLE
  18. MIRAPEX [Concomitant]
     Active Substance: PRAMIPEXOLE DIHYDROCHLORIDE
  19. PREDNISOLONE [Concomitant]
     Active Substance: PREDNISOLONE
  20. LIPITOR [Concomitant]
     Active Substance: ATORVASTATIN CALCIUM

REACTIONS (1)
  - Spinal operation [Unknown]
